FAERS Safety Report 5652505-3 (Version None)
Quarter: 2008Q1

REPORT INFORMATION
  Report Type: 
  Country: None (occurrence: None)
  Receive Date: 20080306
  Receipt Date: 20080224
  Transmission Date: 20080703
  Serious: Yes (Hospitalization)
  Sender: FDA-Public Use
  Company Number: BE-JNJFOC-20080205988

PATIENT
  Age: 12 Month
  Sex: Male

DRUGS (2)
  1. DAKTARIN [Suspect]
     Route: 048
  2. DAKTARIN [Suspect]
     Indication: MALABSORPTION
     Route: 048

REACTIONS (2)
  - COUGH [None]
  - DYSPNOEA [None]
